FAERS Safety Report 10284488 (Version 1)
Quarter: 2014Q3

REPORT INFORMATION
  Report Type: Spontaneous
  Country: US (occurrence: None)
  Receive Date: 20140702
  Receipt Date: 20140702
  Transmission Date: 20150326
  Serious: Yes (Other)
  Sender: FDA-Public Use
  Company Number: None

PATIENT
  Age: 29 Year
  Sex: Female
  Weight: 70.31 kg

DRUGS (1)
  1. MIRENA [Suspect]
     Active Substance: LEVONORGESTREL

REACTIONS (10)
  - Loss of consciousness [None]
  - Mood swings [None]
  - Insomnia [None]
  - Acne [None]
  - Blood pressure increased [None]
  - Depression [None]
  - Alopecia [None]
  - Injury [None]
  - Anger [None]
  - Weight increased [None]
